FAERS Safety Report 7516547-5 (Version None)
Quarter: 2011Q2

REPORT INFORMATION
  Report Type: 
  Country: None (occurrence: None)
  Receive Date: 20110601
  Receipt Date: 20110523
  Transmission Date: 20111010
  Serious: Yes (Hospitalization)
  Sender: FDA-Public Use
  Company Number: B0721426A

PATIENT
  Age: 28 Year
  Sex: Female

DRUGS (1)
  1. MALARONE [Suspect]
     Indication: PROPHYLAXIS
     Dosage: 1TAB PER DAY
     Route: 048
     Dates: start: 20110505, end: 20110501

REACTIONS (5)
  - PYREXIA [None]
  - VOMITING [None]
  - GASTROINTESTINAL DISORDER [None]
  - TINNITUS [None]
  - DIARRHOEA [None]
